FAERS Safety Report 8559268-2 (Version None)
Quarter: 2012Q3

REPORT INFORMATION
  Report Type: 
  Country: None (occurrence: None)
  Receive Date: 20120802
  Receipt Date: 20120725
  Transmission Date: 20120928
  Serious: Yes (Death, Other)
  Sender: FDA-Public Use
  Company Number: JP-SANOFI-AVENTIS-2012SA042784

PATIENT
  Age: 77 Year
  Sex: Male
  Weight: 59.75 kg

DRUGS (8)
  1. AMIODARONE HYDROCHLORIDE [Concomitant]
  2. RABEPRAZOLE SODIUM [Concomitant]
     Route: 048
  3. PLAVIX [Suspect]
     Indication: ANGINA PECTORIS
     Route: 048
  4. PLETAL [Concomitant]
     Route: 048
  5. MEXIRATE [Concomitant]
     Route: 048
  6. WARFARIN [Concomitant]
     Route: 048
  7. SIGMART [Concomitant]
  8. TICLOPIDINE HCL [Suspect]
     Indication: ANGINA PECTORIS
     Route: 048

REACTIONS (2)
  - NEUTROPENIA [None]
  - LIVER DISORDER [None]
